FAERS Safety Report 21243403 (Version 1)
Quarter: 2022Q3

REPORT INFORMATION
  Report Type: Spontaneous
  Country: US (occurrence: None)
  Receive Date: 20220822
  Receipt Date: 20220822
  Transmission Date: 20221027
  Serious: Yes (Other)
  Sender: FDA-Public Use
  Company Number: None

PATIENT
  Sex: 0

DRUGS (1)
  1. VENOFER [Suspect]
     Active Substance: IRON SUCROSE
     Dates: start: 20220822, end: 20220822

REACTIONS (3)
  - Infusion related reaction [None]
  - Peripheral swelling [None]
  - Dyspnoea [None]

NARRATIVE: CASE EVENT DATE: 20220822
